FAERS Safety Report 8813435 (Version 1)
Quarter: 2012Q4

REPORT INFORMATION
  Report Type: 
  Country: US (occurrence: US)
  Receive Date: 20120927
  Receipt Date: 20120927
  Transmission Date: 20130627
  Serious: No
  Sender: FDA-Public Use
  Company Number: US-AMGEN-USASP2012046901

PATIENT
  Age: 77 Year
  Sex: Female
  Weight: 63 kg

DRUGS (11)
  1. PROLIA [Suspect]
     Indication: OSTEOPOROSIS
     Dosage: UNK UNK, q6mo
     Route: 058
     Dates: start: 20110318
  2. PROLIA [Suspect]
     Dosage: UNK, q6mo
     Route: 058
     Dates: start: 20110921
  3. PROLIA [Suspect]
     Dosage: UNK, q6mo
     Route: 058
     Dates: start: 20120323
  4. ALLOPURINOL [Concomitant]
     Dosage: UNK
     Route: 048
  5. ASA [Concomitant]
     Dosage: 81 mg, UNK
     Route: 048
  6. CALCIUM [Concomitant]
     Dosage: 1200 mg, UNK
     Route: 048
  7. CLONIDINE [Concomitant]
     Indication: HYPERTENSION
     Dosage: 0.1 mg, UNK
     Route: 048
  8. DIOVAN [Concomitant]
     Indication: HYPERTENSION
     Dosage: 320 mg, UNK
  9. OMEPRAZOL [Concomitant]
     Indication: REFLUX GASTRITIS
     Dosage: 20 mg, UNK
  10. TORSEMIDE [Concomitant]
     Indication: HYPERTENSION
     Dosage: 20 mg, UNK
  11. UNITHROID [Concomitant]
     Indication: HYPOTHYROIDISM
     Dosage: UNK

REACTIONS (2)
  - Blood calcium increased [Unknown]
  - Blood parathyroid hormone increased [Unknown]
